FAERS Safety Report 12006180 (Version 2)
Quarter: 2016Q2

REPORT INFORMATION
  Report Type: Spontaneous
  Country: JP (occurrence: JP)
  Receive Date: 20160204
  Receipt Date: 20160405
  Transmission Date: 20160815
  Serious: Yes (Other)
  Sender: FDA-Public Use
  Company Number: JP-VIIV HEALTHCARE LIMITED-JP2015JPN093455

PATIENT
  Age: 57 Year
  Sex: Male
  Weight: 56 kg

DRUGS (4)
  1. HEPSERA [Suspect]
     Active Substance: ADEFOVIR DIPIVOXIL
     Indication: VIRAL HEPATITIS CARRIER
     Dosage: 10 MG, QD
     Route: 048
     Dates: start: 20030927
  2. HEPSERA [Suspect]
     Active Substance: ADEFOVIR DIPIVOXIL
     Dosage: 10 MG, QOD
     Route: 048
     Dates: end: 20150626
  3. ZEFIX [Suspect]
     Active Substance: LAMIVUDINE
     Dosage: UNK
     Route: 048
     Dates: start: 200609, end: 201011
  4. ZEFIX [Suspect]
     Active Substance: LAMIVUDINE
     Indication: HEPATITIS B
     Dosage: 100 MG, QD
     Route: 048
     Dates: start: 200102, end: 200309

REACTIONS (25)
  - Hepatitis B surface antibody positive [Unknown]
  - Blood thyroid stimulating hormone increased [Unknown]
  - Arthralgia [Recovering/Resolving]
  - Alanine aminotransferase increased [Unknown]
  - Drug resistance [Unknown]
  - Blood alkaline phosphatase increased [Unknown]
  - Hepatitis B e antibody negative [Unknown]
  - Blood creatinine increased [Recovered/Resolved]
  - Arthralgia [Unknown]
  - Fanconi syndrome acquired [Unknown]
  - Multiple fractures [Unknown]
  - Bone pain [Recovering/Resolving]
  - Alpha 1 foetoprotein increased [Unknown]
  - Hypophosphataemia [Recovered/Resolved]
  - Bone pain [Unknown]
  - Pain in extremity [Recovering/Resolving]
  - Hypouricaemia [Unknown]
  - Glycosuria [Recovered/Resolved]
  - Osteomalacia [Unknown]
  - Aminoaciduria [Unknown]
  - Anti-thyroid antibody positive [Unknown]
  - Proteinuria [Recovered/Resolved]
  - Myalgia [Unknown]
  - Gait disturbance [Unknown]
  - Back pain [Unknown]

NARRATIVE: CASE EVENT DATE: 200912
